FAERS Safety Report 6967373-7 (Version None)
Quarter: 2010Q3

REPORT INFORMATION
  Report Type: 
  Country: None (occurrence: None)
  Receive Date: 20100901
  Receipt Date: 20100825
  Transmission Date: 20110219
  Serious: Yes (Congenital Anomaly, Other)
  Sender: FDA-Public Use
  Company Number: AU-ACCORD-005998

PATIENT
  Sex: Male

DRUGS (1)
  1. MYCOPHENOLATE MOFETIL [Suspect]
     Dosage: TRANSPLACENTAL
     Route: 064

REACTIONS (9)
  - CAESAREAN SECTION [None]
  - CLEFT UVULA [None]
  - DYSMORPHISM [None]
  - EXTERNAL AUDITORY CANAL ATRESIA [None]
  - JAW DISORDER [None]
  - MATERNAL DRUGS AFFECTING FOETUS [None]
  - MICROTIA [None]
  - PREMATURE BABY [None]
  - RETROGNATHIA [None]
